FAERS Safety Report 8077387-4 (Version None)
Quarter: 2012Q1

REPORT INFORMATION
  Report Type: 
  Country: None (occurrence: None)
  Receive Date: 20120127
  Receipt Date: 20120125
  Transmission Date: 20120608
  Serious: No
  Sender: FDA-Public Use
  Company Number: PHEH2012US002255

PATIENT
  Sex: Male
  Weight: 99.773 kg

DRUGS (7)
  1. TASIGNA [Suspect]
     Indication: CHRONIC MYELOID LEUKAEMIA
     Dosage: 300 MG, Q12H
     Dates: start: 20110714
  2. BENICAR [Concomitant]
     Dosage: UNK UKN, UNK
  3. CALTRATE [Concomitant]
     Dosage: UNK UKN, UNK
  4. INDOMETHACIN [Concomitant]
     Dosage: UNK UKN, UNK
  5. ASPIRIN [Concomitant]
     Dosage: UNK UKN, UNK
  6. NORVASC [Concomitant]
     Dosage: UNK UKN, UNK
  7. LIPITOR [Concomitant]
     Dosage: UNK UKN, UNK

REACTIONS (1)
  - ABDOMINAL DISTENSION [None]
